FAERS Safety Report 5649923-6 (Version None)
Quarter: 2008Q1

REPORT INFORMATION
  Report Type: 
  Country: None (occurrence: None)
  Receive Date: 20080304
  Receipt Date: 20080220
  Transmission Date: 20080703
  Serious: Yes (Death, Life-Threatening)
  Sender: FDA-Public Use
  Company Number: DE-BAYER-200813772GPV

PATIENT
  Age: 63 Year
  Sex: Male

DRUGS (49)
  1. CIPRO [Suspect]
     Indication: INFECTION PROPHYLAXIS
     Dosage: UNIT DOSE: 500 MG
     Route: 048
     Dates: start: 20040728, end: 20040801
  2. CIPRO [Suspect]
     Route: 048
     Dates: start: 20040717, end: 20040717
  3. CIPRO [Suspect]
     Dosage: UNIT DOSE: 500 MG
     Route: 048
     Dates: start: 20040804, end: 20040804
  4. VANCOMYCIN [Suspect]
     Indication: INFECTION PROPHYLAXIS
     Dosage: UNIT DOSE: 1 G
     Route: 042
     Dates: start: 20040801, end: 20040801
  5. ACC LONG [Suspect]
     Indication: DRUG USE FOR UNKNOWN INDICATION
     Dosage: UNIT DOSE: 600 MG
     Route: 048
     Dates: start: 20040420, end: 20040728
  6. ACETYLCYSTEINE [Suspect]
     Indication: DRUG USE FOR UNKNOWN INDICATION
     Dosage: UNIT DOSE: 300 MG
     Route: 042
     Dates: start: 20040801, end: 20040806
  7. RAMIPRIL [Suspect]
     Indication: HYPERTENSION
     Route: 048
     Dates: start: 20040720, end: 20041022
  8. RAMIPRIL [Suspect]
     Route: 048
     Dates: start: 20040717, end: 20040717
  9. NEXIUM [Suspect]
     Indication: PROPHYLAXIS
     Dosage: UNIT DOSE: 20 MG
     Route: 048
     Dates: start: 20040720, end: 20041022
  10. NEXIUM [Suspect]
     Route: 048
     Dates: start: 20040717, end: 20040717
  11. PROGRAF [Suspect]
     Indication: RESTLESS LEGS SYNDROME
     Route: 048
     Dates: start: 20040717, end: 20041022
  12. MERONEM [Suspect]
     Indication: INFECTION PROPHYLAXIS
     Dosage: UNIT DOSE: 1 G
     Route: 042
     Dates: start: 20040718, end: 20040722
  13. MERONEM [Suspect]
     Dosage: UNIT DOSE: 1 G
     Route: 042
     Dates: start: 20040803, end: 20040806
  14. ACYCLOVIR [Suspect]
     Indication: ANTIVIRAL PROPHYLAXIS
     Dosage: UNIT DOSE: 200 MG
     Route: 048
     Dates: start: 20040720, end: 20040722
  15. ACYCLOVIR [Suspect]
     Dosage: UNIT DOSE: 200 MG
     Route: 048
     Dates: start: 20040724, end: 20040728
  16. FRAGMIN P [Suspect]
     Indication: THROMBOSIS PROPHYLAXIS
     Route: 058
     Dates: start: 20040720, end: 20041022
  17. PREDNISOLONE [Suspect]
     Indication: LIVER TRANSPLANT REJECTION
     Route: 042
     Dates: start: 20040720, end: 20041002
  18. SIFROL [Suspect]
     Indication: ENDOSCOPIC RETROGRADE CHOLANGIOPANCREATOGRAPHY
     Route: 048
     Dates: start: 20040720, end: 20041022
  19. SOLU-DECORTIN-H [Suspect]
     Indication: PROPHYLAXIS AGAINST TRANSPLANT REJECTION
     Route: 042
     Dates: start: 20040723, end: 20040726
  20. TRAMAL [Suspect]
     Indication: PAIN
     Route: 048
     Dates: start: 20040728, end: 20040728
  21. TRAMAL [Suspect]
     Route: 048
     Dates: start: 20040730, end: 20040801
  22. DIFLUCAN [Suspect]
     Indication: FUNGAL INFECTION
     Dosage: UNIT DOSE: 100 MG
     Route: 048
     Dates: start: 20040728, end: 20040804
  23. PIPRIL [Suspect]
     Indication: INFECTION PROPHYLAXIS
     Dosage: UNIT DOSE: 2 G
     Route: 042
     Dates: start: 20040730, end: 20040806
  24. COMBACTAM [Suspect]
     Indication: INFECTION PROPHYLAXIS
     Dosage: UNIT DOSE: 1 G
     Route: 042
     Dates: start: 20040730, end: 20040806
  25. MCP [Suspect]
     Indication: NAUSEA
     Route: 048
     Dates: start: 20040801, end: 20040801
  26. BENURON [Suspect]
     Indication: PAIN
     Route: 054
     Dates: start: 20040802, end: 20040802
  27. BENURON [Suspect]
     Route: 054
     Dates: start: 20040804, end: 20040807
  28. PANTOZOL [Concomitant]
     Indication: PROPHYLAXIS
     Route: 048
     Dates: start: 20040724, end: 20040724
  29. PANTOZOL [Concomitant]
     Route: 048
     Dates: start: 20040420, end: 20040721
  30. URSO FALK [Concomitant]
     Indication: GASTROOESOPHAGEAL REFLUX PROPHYLAXIS
     Route: 048
     Dates: start: 20040717, end: 20040718
  31. METOPROLOL TARTRATE [Concomitant]
     Indication: HYPERTENSION
     Dosage: UNIT DOSE: 47.5 MG
     Route: 048
     Dates: start: 20040720, end: 20040721
  32. SEBIPROX [Concomitant]
     Indication: DRUG USE FOR UNKNOWN INDICATION
     Route: 061
     Dates: start: 20040720, end: 20041022
  33. PSORCUTAN [Concomitant]
     Indication: PSORIASIS
     Route: 061
     Dates: start: 20040720, end: 20041022
  34. PSORCUTAN [Concomitant]
     Route: 061
     Dates: start: 20040720, end: 20041022
  35. ATROPIN [Concomitant]
     Indication: DRUG USE FOR UNKNOWN INDICATION
     Route: 058
     Dates: start: 20040721, end: 20040723
  36. SAB SIMPLEX [Concomitant]
     Indication: GASTROINTESTINAL DISORDER
     Route: 048
     Dates: start: 20040723, end: 20040723
  37. KALINOR BT [Concomitant]
     Indication: HYPOKALAEMIA
     Route: 048
     Dates: start: 20040723, end: 20040724
  38. NOCTAMID [Concomitant]
     Indication: SLEEP DISORDER
     Route: 048
     Dates: start: 20040725, end: 20040726
  39. NOCTAMID [Concomitant]
     Route: 048
     Dates: start: 20040723, end: 20040723
  40. KONAKION [Concomitant]
     Indication: DRUG USE FOR UNKNOWN INDICATION
     Dosage: UNIT DOSE: 20 GTT
     Route: 048
     Dates: start: 20040802, end: 20040805
  41. KANAVIT [Concomitant]
     Indication: DRUG USE FOR UNKNOWN INDICATION
     Route: 048
     Dates: start: 20040802, end: 20041022
  42. LASIX [Concomitant]
     Indication: OEDEMA
     Route: 048
     Dates: start: 20040803, end: 20040803
  43. FORTRAL [Concomitant]
     Indication: ENDOSCOPIC RETROGRADE CHOLANGIOPANCREATOGRAPHY
     Route: 042
     Dates: start: 20040804, end: 20040804
  44. DORMICUM [Concomitant]
     Indication: ENDOSCOPIC RETROGRADE CHOLANGIOPANCREATOGRAPHY
     Route: 042
     Dates: start: 20040804, end: 20040804
  45. BENURON [Concomitant]
     Route: 048
     Dates: start: 20040808, end: 20040808
  46. BENURON [Concomitant]
     Route: 065
     Dates: start: 20040806, end: 20040806
  47. CIPRO [Concomitant]
     Dosage: UNIT DOSE: 400 MG
     Route: 042
     Dates: start: 20040806, end: 20041022
  48. MAXIPIME [Concomitant]
     Indication: INFECTION PROPHYLAXIS
     Dosage: UNIT DOSE: 2 G
     Route: 042
     Dates: start: 20040806, end: 20041022
  49. CALCIUM BRAUSE [Concomitant]
     Indication: MINERAL SUPPLEMENTATION
     Route: 048
     Dates: start: 20040807, end: 20041022

REACTIONS (7)
  - BLISTER [None]
  - NIKOLSKY'S SIGN [None]
  - PYREXIA [None]
  - RASH MACULAR [None]
  - SKIN LESION [None]
  - STEVENS-JOHNSON SYNDROME [None]
  - TOXIC EPIDERMAL NECROLYSIS [None]
